FAERS Safety Report 12306380 (Version 1)
Quarter: 2016Q2

REPORT INFORMATION
  Report Type: Report from Study
  Country: US (occurrence: US)
  Receive Date: 20160426
  Receipt Date: 20160426
  Transmission Date: 20160815
  Serious: Yes (Other)
  Sender: FDA-Public Use
  Company Number: US-JNJFOC-20160415826

PATIENT
  Age: 37 Year
  Sex: Female
  Weight: 58.6 kg

DRUGS (3)
  1. REMICADE [Suspect]
     Active Substance: INFLIXIMAB
     Indication: PRODUCT USED FOR UNKNOWN INDICATION
     Route: 042
  2. LEVOTHYROXINE. [Concomitant]
     Active Substance: LEVOTHYROXINE
     Route: 065
  3. SUPREP BOWEL PREP [Concomitant]
     Active Substance: MAGNESIUM SULFATE\POTASSIUM SULFATE\SODIUM SULFATE
     Route: 048

REACTIONS (5)
  - Crohn^s disease [Unknown]
  - Gastroduodenitis [Unknown]
  - Exposure during pregnancy [Not Recovered/Not Resolved]
  - Colon adenoma [Unknown]
  - Nausea [Unknown]

NARRATIVE: CASE EVENT DATE: 201603
